FAERS Safety Report 4360812-X (Version None)
Quarter: 2004Q2

REPORT INFORMATION
  Report Type: 
  Country: None (occurrence: None)
  Receive Date: 20040517
  Receipt Date: 20040430
  Transmission Date: 20050107
  Serious: Yes (Hospitalization)
  Sender: FDA-Public Use
  Company Number: MPS1-10217

PATIENT
  Age: 10 Month
  Sex: Female
  Weight: 7.4 kg

DRUGS (1)
  1. ALDURAZYME [Suspect]
     Indication: MUCOPOLYSACCHARIDOSIS I
     Dosage: 100 U/KG QWK IV
     Route: 042
     Dates: start: 20040226

REACTIONS (2)
  - COLLAPSE OF LUNG [None]
  - LOWER RESPIRATORY TRACT INFECTION [None]
